FAERS Safety Report 7634244-2 (Version None)
Quarter: 2011Q3

REPORT INFORMATION
  Report Type: 
  Country: None (occurrence: None)
  Receive Date: 20110725
  Receipt Date: 20110719
  Transmission Date: 20111222
  Serious: Yes (Hospitalization)
  Sender: FDA-Public Use
  Company Number: JP-CEPHALON-2011003624

PATIENT
  Sex: Male

DRUGS (8)
  1. ACYCLOVIR [Concomitant]
     Dates: start: 20110602
  2. BENDAMUSTINE HCL [Suspect]
     Indication: DIFFUSE LARGE B-CELL LYMPHOMA RECURRENT
     Route: 041
     Dates: start: 20110531, end: 20110601
  3. BENDAMUSTINE HCL [Suspect]
     Route: 042
     Dates: start: 20110714, end: 20110715
  4. ALLOPURINOL [Concomitant]
     Dates: start: 20110525
  5. BENDAMUSTINE HCL [Suspect]
     Route: 041
     Dates: start: 20110621, end: 20110622
  6. RITUXIMAB [Suspect]
     Indication: DIFFUSE LARGE B-CELL LYMPHOMA RECURRENT
     Route: 042
     Dates: start: 20110530, end: 20110530
  7. RITUXIMAB [Suspect]
     Route: 042
     Dates: start: 20110620, end: 20110620
  8. RITUXIMAB [Suspect]
     Route: 042
     Dates: start: 20110713, end: 20110713

REACTIONS (2)
  - NEUTROPENIA [None]
  - CYTOMEGALOVIRUS INFECTION [None]
